FAERS Safety Report 8811122 (Version 1)
Quarter: 2012Q4

REPORT INFORMATION
  Report Type: 
  Country: FR (occurrence: FR)
  Receive Date: 20120927
  Receipt Date: 20120927
  Transmission Date: 20130627
  Serious: Yes (Other)
  Sender: FDA-Public Use
  Company Number: FR-UCBSA-066245

PATIENT
  Sex: Male

DRUGS (1)
  1. CIMZIA [Suspect]
     Indication: RHEUMATOID ARTHRITIS
     Dosage: 400 MG LOADING DOSE
     Route: 058
     Dates: start: 2012, end: 2012

REACTIONS (2)
  - Hepatocellular injury [Unknown]
  - Cholestasis [Unknown]
